FAERS Safety Report 9419774 (Version 3)
Quarter: 2013Q4

REPORT INFORMATION
  Report Type: Spontaneous
  Country: GB (occurrence: None)
  Receive Date: 20130723
  Receipt Date: 20131101
  Transmission Date: 20140711
  Serious: Yes (Other)
  Sender: FDA-Public Use
  Company Number: AUR-APL-2013-05995

PATIENT
  Age: 61 Year
  Sex: Female
  Weight: 166 kg

DRUGS (10)
  1. CITALOPRAM [Suspect]
     Indication: DEPRESSION
     Route: 048
     Dates: start: 20130620, end: 20130622
  2. COD LIVER OIL (COD LIVER OIL) [Concomitant]
  3. ESTRADIOL (ESTRADIOL) [Concomitant]
  4. FLIXONASE AQUEOUS (FLUTICASONE PROPIONATE) [Concomitant]
  5. LEVOTHYROXINE SODIUM (LEVOTHYROXINE SODIUM) [Concomitant]
  6. MONTELUKAST [Concomitant]
  7. OMEPRAZOLE (OMEPRAZOLE) [Concomitant]
  8. PROCHLORPERAZINE MALEATE (PROCHLORPERAZINE MALEATE) [Concomitant]
  9. SALBUTAMOL (SALBUTAMOL) [Concomitant]
  10. SYMBICORT [Concomitant]

REACTIONS (9)
  - Psychomotor hyperactivity [None]
  - Insomnia [None]
  - Vomiting [None]
  - Norovirus test positive [None]
  - Functional gastrointestinal disorder [None]
  - Speech disorder [None]
  - Fatigue [None]
  - Restlessness [None]
  - Gastroenteritis norovirus [None]
